FAERS Safety Report 16679662 (Version 1)
Quarter: 2019Q3

REPORT INFORMATION
  Report Type: Report from Study
  Country: US (occurrence: US)
  Receive Date: 20190807
  Receipt Date: 20190807
  Transmission Date: 20191004
  Serious: Yes (Hospitalization, Other)
  Sender: FDA-Public Use
  Company Number: US-GILEAD-2019-0422283

PATIENT
  Age: 66 Year
  Sex: Female

DRUGS (17)
  1. JANUMET [Concomitant]
     Active Substance: METFORMIN HYDROCHLORIDE\SITAGLIPTIN PHOSPHATE
  2. LORAZEPAM. [Concomitant]
     Active Substance: LORAZEPAM
  3. PRILOSEC [Concomitant]
     Active Substance: OMEPRAZOLE MAGNESIUM
  4. TRAZODONE [Concomitant]
     Active Substance: TRAZODONE HYDROCHLORIDE
  5. CELEXA [CELECOXIB] [Concomitant]
     Active Substance: CELECOXIB
  6. HYDROCHLOROTH [Concomitant]
     Active Substance: HYDROCHLOROTHIAZIDE
  7. GLIPIZIDE. [Concomitant]
     Active Substance: GLIPIZIDE
  8. METOPROLOL. [Concomitant]
     Active Substance: METOPROLOL
  9. AMBRISENTAN [Suspect]
     Active Substance: AMBRISENTAN
     Indication: PULMONARY HYPERTENSION
     Dosage: 5 MG, QD
     Route: 065
     Dates: start: 20150916
  10. LIPITOR [Concomitant]
     Active Substance: ATORVASTATIN CALCIUM
  11. PATADAY [Concomitant]
     Active Substance: OLOPATADINE HYDROCHLORIDE
  12. ASPIRIN (E.C.) [Concomitant]
     Active Substance: ASPIRIN
  13. BACLOFEN. [Concomitant]
     Active Substance: BACLOFEN
  14. BASAGLAR [Concomitant]
     Active Substance: INSULIN GLARGINE
  15. SYMBICORT [Concomitant]
     Active Substance: BUDESONIDE\FORMOTEROL FUMARATE DIHYDRATE
  16. NEURONTIN [Concomitant]
     Active Substance: GABAPENTIN
  17. VENTOLIN HFA [Concomitant]
     Active Substance: ALBUTEROL SULFATE

REACTIONS (1)
  - Breast cancer female [Not Recovered/Not Resolved]

NARRATIVE: CASE EVENT DATE: 201907
